FAERS Safety Report 24174186 (Version 2)
Quarter: 2024Q3

REPORT INFORMATION
  Report Type: Report from Study
  Country: CA (occurrence: CA)
  Receive Date: 20240805
  Receipt Date: 20240918
  Transmission Date: 20241016
  Serious: Yes (Other)
  Sender: CSL BEHRING
  Company Number: CA-BEH-2024176695

PATIENT
  Age: 2 Year
  Sex: Male
  Weight: 7.5 kg

DRUGS (7)
  1. HIZENTRA [Suspect]
     Active Substance: HUMAN IMMUNOGLOBULIN G
     Indication: Secondary immunodeficiency
     Dosage: UNK, EVERY 2 WEEKS
     Route: 065
     Dates: start: 20230331
  2. HIZENTRA [Suspect]
     Active Substance: HUMAN IMMUNOGLOBULIN G
     Dosage: 2 G, EVERY 2 WEEKS
     Route: 065
     Dates: start: 20230331
  3. HIZENTRA [Suspect]
     Active Substance: HUMAN IMMUNOGLOBULIN G
     Dosage: 8 G
     Route: 065
  4. LASIX [Concomitant]
     Active Substance: FUROSEMIDE
  5. SPIRONOLACTONE [Concomitant]
     Active Substance: SPIRONOLACTONE
  6. VITAMIN D [Concomitant]
     Active Substance: VITAMIN D NOS
  7. DIGOXIN [Concomitant]
     Active Substance: DIGOXIN

REACTIONS (3)
  - Sleep apnoea syndrome [Unknown]
  - Infusion site erythema [Unknown]
  - Infusion site oedema [Unknown]

NARRATIVE: CASE EVENT DATE: 20240910
